FAERS Safety Report 7776897-4 (Version None)
Quarter: 2011Q3

REPORT INFORMATION
  Report Type: 
  Country: None (occurrence: None)
  Receive Date: 20110926
  Receipt Date: 20110825
  Transmission Date: 20111222
  Serious: Yes (Other)
  Sender: FDA-Public Use
  Company Number: US-BAYER-2011-078871

PATIENT
  Sex: Female

DRUGS (1)
  1. ALEVE (CAPLET) [Suspect]

REACTIONS (5)
  - BODY TEMPERATURE INCREASED [None]
  - COUGH [None]
  - BACK PAIN [None]
  - DYSPNOEA [None]
  - ARTHRALGIA [None]
